FAERS Safety Report 4758691-1 (Version None)
Quarter: 2005Q3

REPORT INFORMATION
  Report Type: 
  Country: None (occurrence: None)
  Receive Date: 20050829
  Receipt Date: 20050818
  Transmission Date: 20060218
  Serious: Yes (Hospitalization)
  Sender: FDA-Public Use
  Company Number: FRP05000657

PATIENT
  Age: 80 Year
  Sex: Female

DRUGS (12)
  1. ACTONEL [Suspect]
     Dosage: 35 MG, 1 /WEEK, ORAL
     Route: 048
     Dates: start: 20010615
  2. ZOCOR [Suspect]
     Dosage: 20 MG, DAILY, ORAL
     Route: 048
     Dates: start: 20010615
  3. ARAVA [Suspect]
     Indication: RHEUMATOID ARTHRITIS
     Dosage: 10 MG, DAILY, ORAL
     Route: 048
     Dates: start: 20010918
  4. HUMIRA [Concomitant]
  5. PREDNISONE [Concomitant]
  6. MOBIC [Concomitant]
  7. OMEPRAZOLE [Concomitant]
  8. OROCAL D (3) (COLCALCIFEROL, CALCIUM CARBONATE) [Concomitant]
  9. SECTRAL ^AVENTIS^ (ACEBUTOLOL HYDROCHLORIDE) [Concomitant]
  10. FUROSEMIDE [Concomitant]
  11. KARDEGIC /FRA/ (ACETYLSALICYLIC LYSINE) [Concomitant]
  12. APROVEL (IRBESARTAN) [Concomitant]

REACTIONS (4)
  - ACANTHOMA [None]
  - DRUG TOXICITY [None]
  - NEUROPATHY PERIPHERAL [None]
  - SQUAMOUS CELL CARCINOMA [None]
